FAERS Safety Report 4518339-8 (Version None)
Quarter: 2004Q4

REPORT INFORMATION
  Report Type: 
  Country: None (occurrence: None)
  Receive Date: 20041203
  Receipt Date: 20041124
  Transmission Date: 20050328
  Serious: Yes (Other)
  Sender: FDA-Public Use
  Company Number: CA-ABBOTT-04P-028-0282004-00

PATIENT

DRUGS (4)
  1. SEVOFLURANE [Suspect]
     Indication: INDUCTION OF ANAESTHESIA
     Route: 055
  2. SUFENTANIL [Suspect]
     Indication: ANAESTHESIA
  3. NITROUS OXIDE [Concomitant]
     Indication: INDUCTION OF ANAESTHESIA
     Dosage: 3 LITERS PER MINUTE
     Route: 055
  4. OXYGEN [Concomitant]
     Indication: INDUCTION OF ANAESTHESIA
     Dosage: 3 LITERS PER MINUTE
     Route: 055

REACTIONS (2)
  - BRADYCARDIA [None]
  - CARDIAC ARREST [None]
